FAERS Safety Report 4933338-X (Version None)
Quarter: 2006Q1

REPORT INFORMATION
  Report Type: 
  Country: None (occurrence: None)
  Receive Date: 20060306
  Receipt Date: 20060224
  Transmission Date: 20060701
  Serious: Yes (Other)
  Sender: FDA-Public Use
  Company Number: 2006UW03151

PATIENT
  Age: 70 Year
  Sex: Female
  Weight: 98.2 kg

DRUGS (11)
  1. ATACAND [Suspect]
     Route: 048
  2. CHLORTHALIDONE [Suspect]
     Route: 048
  3. NOVOLIN [Concomitant]
     Indication: DIABETES MELLITUS NON-INSULIN-DEPENDENT
     Dosage: 70/30
     Dates: start: 20051101
  4. NORVASC [Concomitant]
  5. NORVASC [Concomitant]
  6. BIDIL [Concomitant]
     Route: 048
  7. NIFEREX [Concomitant]
     Route: 048
  8. NITROSTAT [Concomitant]
     Route: 060
  9. TYLENOL (CAPLET) [Concomitant]
  10. DULCOLAX [Concomitant]
     Route: 048
  11. CENTRUM SILVER [Concomitant]

REACTIONS (5)
  - ATRIAL FIBRILLATION [None]
  - CARDIOMEGALY [None]
  - CHEST PAIN [None]
  - HYPERKALAEMIA [None]
  - HYPONATRAEMIA [None]
